FAERS Safety Report 12685965 (Version 1)
Quarter: 2016Q3

REPORT INFORMATION
  Report Type: Spontaneous
  Country: US (occurrence: US)
  Receive Date: 20160825
  Receipt Date: 20160825
  Transmission Date: 20161109
  Serious: Yes (Other)
  Sender: FDA-Public Use
  Company Number: US-BAYER-2016-159194

PATIENT
  Age: 42 Year
  Sex: Female

DRUGS (3)
  1. COPAXONE [Suspect]
     Active Substance: GLATIRAMER ACETATE
     Indication: MULTIPLE SCLEROSIS
  2. BETASERON [Suspect]
     Active Substance: INTERFERON BETA-1B
     Indication: MULTIPLE SCLEROSIS
     Dosage: UNK
  3. GILENYA [Suspect]
     Active Substance: FINGOLIMOD HYDROCHLORIDE
     Indication: MULTIPLE SCLEROSIS

REACTIONS (4)
  - Lymphocyte count decreased [None]
  - Multiple sclerosis relapse [None]
  - Injection site reaction [None]
  - Drug ineffective [None]
